FAERS Safety Report 4271383-0 (Version None)
Quarter: 2004Q1

REPORT INFORMATION
  Report Type: 
  Country: None (occurrence: None)
  Receive Date: 20040113
  Receipt Date: 20040105
  Transmission Date: 20041129
  Serious: Yes (Death)
  Sender: FDA-Public Use
  Company Number: US-JNJFOC-20040100559

PATIENT

DRUGS (1)
  1. DURAGESIC [Suspect]
     Indication: PAIN
     Dosage: ORAL
     Route: 048
     Dates: end: 20031201

REACTIONS (1)
  - MEDICATION ERROR [None]
